FAERS Safety Report 11146522 (Version 1)
Quarter: 2015Q2

REPORT INFORMATION
  Report Type: Spontaneous
  Country: US (occurrence: US)
  Receive Date: 20150528
  Receipt Date: 20150528
  Transmission Date: 20150821
  Serious: Yes (Other)
  Sender: FDA-Public Use
  Company Number: US-SA-2015SA069467

PATIENT
  Age: 66 Year
  Sex: Female

DRUGS (7)
  1. SOLOSTAR [Concomitant]
     Active Substance: DEVICE
     Indication: TYPE 2 DIABETES MELLITUS
     Dates: start: 201505
  2. LEVEMIR [Concomitant]
     Active Substance: INSULIN DETEMIR
  3. SOLOSTAR [Concomitant]
     Active Substance: DEVICE
     Indication: TYPE 2 DIABETES MELLITUS
     Dates: end: 201503
  4. LANTUS SOLOSTAR [Suspect]
     Active Substance: INSULIN GLARGINE
     Indication: TYPE 2 DIABETES MELLITUS
     Dosage: DOSE:50 UNIT(S)
     Route: 065
     Dates: start: 201505
  5. TOUJEO [Concomitant]
     Active Substance: INSULIN GLARGINE
  6. SOLOSTAR U300 [Concomitant]
  7. LANTUS SOLOSTAR [Suspect]
     Active Substance: INSULIN GLARGINE
     Indication: TYPE 2 DIABETES MELLITUS
     Dosage: TREATMENT START DATE: 5-6 YEARS AGO DOSE:50 UNIT(S)
     Route: 065
     Dates: end: 201503

REACTIONS (3)
  - Injection site pain [Unknown]
  - Injection site mass [Unknown]
  - Peritoneal fibrosis [Unknown]
